FAERS Safety Report 8463699-9 (Version None)
Quarter: 2012Q2

REPORT INFORMATION
  Report Type: 
  Country: None (occurrence: None)
  Receive Date: 20120625
  Receipt Date: 20120611
  Transmission Date: 20120825
  Serious: Yes (Other)
  Sender: FDA-Public Use
  Company Number: GB-INCYTE CORPORATION-2012IN001101

PATIENT

DRUGS (1)
  1. INC424 [Suspect]

REACTIONS (1)
  - TOOTH LOSS [None]
